FAERS Safety Report 16115245 (Version 1)
Quarter: 2019Q1

REPORT INFORMATION
  Report Type: Spontaneous
  Country: US (occurrence: US)
  Receive Date: 20190325
  Receipt Date: 20190325
  Transmission Date: 20190418
  Serious: Yes (Hospitalization, Other)
  Sender: FDA-Public Use
  Company Number: US-VIIV HEALTHCARE LIMITED-US2019GSK052177

PATIENT
  Age: 42 Year
  Sex: Male

DRUGS (15)
  1. DOLUTEGRAVIR [Suspect]
     Active Substance: DOLUTEGRAVIR
     Indication: HEPATITIS C
  2. VELPATASVIR [Suspect]
     Active Substance: VELPATASVIR
     Indication: HEPATITIS B
  3. DOLUTEGRAVIR [Suspect]
     Active Substance: DOLUTEGRAVIR
     Indication: HIV INFECTION
     Dosage: UNK
     Route: 065
  4. TENOFOVIR ALAFENAMIDE [Suspect]
     Active Substance: TENOFOVIR ALAFENAMIDE
     Indication: HIV INFECTION
     Dosage: UNK
     Route: 065
  5. VELPATASVIR [Suspect]
     Active Substance: VELPATASVIR
     Indication: HIV INFECTION
     Dosage: UNK
     Route: 065
  6. VELPATASVIR [Suspect]
     Active Substance: VELPATASVIR
     Indication: HEPATITIS C
  7. EMTRICITABINE [Suspect]
     Active Substance: EMTRICITABINE
     Indication: HEPATITIS B
  8. SOFOSBUVIR [Suspect]
     Active Substance: SOFOSBUVIR
     Indication: HEPATITIS B
  9. SOFOSBUVIR [Suspect]
     Active Substance: SOFOSBUVIR
     Indication: HIV INFECTION
     Dosage: UNK
     Route: 065
  10. DOLUTEGRAVIR [Suspect]
     Active Substance: DOLUTEGRAVIR
     Indication: HEPATITIS B
  11. EMTRICITABINE [Suspect]
     Active Substance: EMTRICITABINE
     Indication: HIV INFECTION
     Dosage: UNK
     Route: 065
  12. TENOFOVIR ALAFENAMIDE [Suspect]
     Active Substance: TENOFOVIR ALAFENAMIDE
     Indication: HEPATITIS B
  13. TENOFOVIR ALAFENAMIDE [Suspect]
     Active Substance: TENOFOVIR ALAFENAMIDE
     Indication: HEPATITIS C
  14. EMTRICITABINE [Suspect]
     Active Substance: EMTRICITABINE
     Indication: HEPATITIS C
  15. SOFOSBUVIR [Suspect]
     Active Substance: SOFOSBUVIR
     Indication: HEPATITIS C

REACTIONS (10)
  - Vasogenic cerebral oedema [Recovering/Resolving]
  - Seizure [Unknown]
  - Loss of consciousness [Unknown]
  - Tongue injury [Unknown]
  - Fatigue [Unknown]
  - Granuloma [Unknown]
  - Immune reconstitution inflammatory syndrome associated tuberculosis [Recovering/Resolving]
  - Oculogyric crisis [Unknown]
  - Muscle twitching [Unknown]
  - Lymphadenopathy [Unknown]
